FAERS Safety Report 25677079 (Version 1)
Quarter: 2025Q3

REPORT INFORMATION
  Report Type: Spontaneous
  Country: US (occurrence: US)
  Receive Date: 20250813
  Receipt Date: 20250813
  Transmission Date: 20251021
  Serious: No
  Sender: TEVA
  Company Number: US-TEVA-VS-3362286

PATIENT
  Sex: Male

DRUGS (1)
  1. UZEDY [Suspect]
     Active Substance: RISPERIDONE
     Indication: Product used for unknown indication
     Dosage: 250 MG/ 2 MONTH DOSE
     Route: 065

REACTIONS (2)
  - Scrotal pain [Recovering/Resolving]
  - Testicular pain [Recovering/Resolving]
